FAERS Safety Report 6217049-9 (Version None)
Quarter: 2009Q2

REPORT INFORMATION
  Report Type: 
  Country: None (occurrence: None)
  Receive Date: 20090606
  Receipt Date: 20090526
  Transmission Date: 20091009
  Serious: Yes (Hospitalization)
  Sender: FDA-Public Use
  Company Number: FR-PFIZER INC-2009208601

PATIENT
  Age: 9 Year

DRUGS (7)
  1. SOLU-MEDROL [Suspect]
     Indication: T-CELL TYPE ACUTE LEUKAEMIA
     Dosage: 15 MG, 2X/DAY
     Route: 042
     Dates: end: 20090407
  2. CYTARABINE [Suspect]
     Indication: T-CELL TYPE ACUTE LEUKAEMIA
     Dosage: UNK
     Route: 042
     Dates: end: 20090317
  3. ONCOVIN [Suspect]
     Indication: T-CELL TYPE ACUTE LEUKAEMIA
     Dosage: 4 DF, UNK
     Dates: start: 20090310, end: 20090407
  4. VOGALENE [Suspect]
     Indication: DRUG USE FOR UNKNOWN INDICATION
     Dosage: UNK
     Route: 042
     Dates: start: 20090406, end: 20090407
  5. ONDANSETRON HCL [Suspect]
     Indication: NAUSEA
     Dosage: 8 MG, 2X/DAY
     Route: 042
     Dates: start: 20090310, end: 20090406
  6. ASPARAGINASE [Suspect]
     Indication: T-CELL TYPE ACUTE LEUKAEMIA
     Dosage: 6600 IU, UNK
     Route: 030
     Dates: end: 20090406
  7. DAUNORUBICIN [Suspect]
     Indication: T-CELL TYPE ACUTE LEUKAEMIA
     Dosage: 44 MG, UNK
     Route: 042
     Dates: end: 20090319

REACTIONS (2)
  - DYSTONIA [None]
  - PERIPHERAL MOTOR NEUROPATHY [None]
